FAERS Safety Report 10675469 (Version 1)
Quarter: 2014Q4

REPORT INFORMATION
  Report Type: Spontaneous
  Country: US (occurrence: US)
  Receive Date: 20141224
  Receipt Date: 20141224
  Transmission Date: 20150529
  Serious: No
  Sender: FDA-Public Use
  Company Number: US-ASTRAZENECA-2014SE95989

PATIENT
  Age: 17501 Day
  Sex: Female
  Weight: 88.5 kg

DRUGS (1)
  1. PULMICORT FLEXHALER [Suspect]
     Active Substance: BUDESONIDE
     Indication: BRONCHITIS
     Dosage: ONE PUFF; TWO TIMES A DAY
     Route: 055

REACTIONS (5)
  - Oral discomfort [Recovered/Resolved]
  - Cough [Unknown]
  - Malaise [Unknown]
  - Drug ineffective [Recovered/Resolved]
  - Off label use [Recovered/Resolved]

NARRATIVE: CASE EVENT DATE: 20141202
